FAERS Safety Report 8218122-6 (Version None)
Quarter: 2012Q1

REPORT INFORMATION
  Report Type: 
  Country: None (occurrence: None)
  Receive Date: 20120319
  Receipt Date: 20120308
  Transmission Date: 20120608
  Serious: Yes (Death, Hospitalization, Other)
  Sender: FDA-Public Use
  Company Number: GR-SANOFI-AVENTIS-2012SA006001

PATIENT
  Age: 76 Year
  Sex: Male

DRUGS (9)
  1. CARBOPLATIN [Suspect]
     Dosage: DOSE: 10% DECREASED
     Route: 065
  2. DOCETAXEL [Suspect]
     Dosage: 2ND TIME CHEMOTHERAPY
     Route: 065
  3. CAPECITABINE [Suspect]
     Dosage: -ON DAY 1-5
     Route: 065
  4. CARBOPLATIN [Suspect]
     Dosage: 2ND TIME CHEMOTHERAPY
     Route: 065
  5. CAPECITABINE [Suspect]
     Dosage: 2ND TIME CHEMOTHERAPY
     Route: 065
  6. CARBOPLATIN [Suspect]
     Dosage: -AREA UNDER THE CURVE 5, ON DAY 1-CYCLE 1-3
     Route: 065
  7. DOCETAXEL [Suspect]
     Dosage: -ON DAY 1-CYCLES 1-3
     Route: 065
  8. DOCETAXEL [Suspect]
     Dosage: DOSE: 10% DECREASED
     Route: 065
  9. GRANULOKINE [Suspect]
     Indication: NEUTROPENIA
     Route: 065
     Dates: start: 20110101

REACTIONS (10)
  - DISEASE PROGRESSION [None]
  - SKIN NECROSIS [None]
  - GASTRIC CANCER [None]
  - THROMBOTIC MICROANGIOPATHY [None]
  - LEPROSY [None]
  - CHRONIC GRANULOMATOUS DISEASE [None]
  - NEUTROPENIA [None]
  - DRUG INEFFECTIVE [None]
  - ERYTHEMA [None]
  - GANGRENE [None]
